FAERS Safety Report 5429572-5 (Version None)
Quarter: 2007Q3

REPORT INFORMATION
  Report Type: 
  Country: None (occurrence: None)
  Receive Date: 20070829
  Receipt Date: 20070817
  Transmission Date: 20080115
  Serious: Yes (Other)
  Sender: FDA-Public Use
  Company Number: US-ROCHE-512248

PATIENT
  Age: 50 Year
  Sex: Male

DRUGS (2)
  1. PEGASYS [Suspect]
     Route: 065
     Dates: start: 20060804, end: 20070630
  2. COPEGUS [Suspect]
     Route: 065
     Dates: start: 20060804, end: 20070630

REACTIONS (2)
  - CORONARY ARTERY DISEASE [None]
  - INTRACARDIAC THROMBUS [None]
